FAERS Safety Report 5791722-9 (Version None)
Quarter: 2008Q2

REPORT INFORMATION
  Report Type: 
  Country: None (occurrence: None)
  Receive Date: 20080618
  Receipt Date: 20080324
  Transmission Date: 20081010
  Serious: Yes (Hospitalization)
  Sender: FDA-Public Use
  Company Number: 200811884US

PATIENT
  Age: 41 Year
  Sex: Male

DRUGS (7)
  1. LANTUS [Suspect]
     Indication: TYPE 1 DIABETES MELLITUS
     Dosage: 80 U QPM SC
     Route: 058
  2. LISINOPRIL [Concomitant]
  3. COREG [Concomitant]
  4. ATIVAN [Concomitant]
  5. PARACETAMOL, HYDROCODONE BITARTRATE (NORCO) [Concomitant]
  6. DOXEPIN HCL [Concomitant]
  7. TIAGABINE HYDROCHLORIDE (GABATRIL) [Concomitant]

REACTIONS (10)
  - BLOOD GLUCOSE DECREASED [None]
  - BLOOD GLUCOSE INCREASED [None]
  - DYSGEUSIA [None]
  - FEELING ABNORMAL [None]
  - HALLUCINATION, VISUAL [None]
  - HYPERHIDROSIS [None]
  - HYPOGLYCAEMIA [None]
  - HYPOGLYCAEMIC SEIZURE [None]
  - INCOHERENT [None]
  - TREMOR [None]
